FAERS Safety Report 12668467 (Version 1)
Quarter: 2016Q3

REPORT INFORMATION
  Report Type: Spontaneous
  Country: US (occurrence: US)
  Receive Date: 20160819
  Receipt Date: 20160819
  Transmission Date: 20161109
  Serious: No
  Sender: FDA-Public Use
  Company Number: US-ELI_LILLY_AND_COMPANY-US201608008903

PATIENT
  Sex: Female

DRUGS (4)
  1. HUMULIN R [Suspect]
     Active Substance: INSULIN HUMAN
     Indication: DIABETES MELLITUS
     Dosage: 35 U, TID
  2. HUMULIN R [Suspect]
     Active Substance: INSULIN HUMAN
     Dosage: 35 U, TID
     Dates: start: 20160814
  3. HUMULIN R U-500 [Suspect]
     Active Substance: INSULIN HUMAN
     Indication: DIABETES MELLITUS
     Dosage: 35 U, TID
     Route: 065
     Dates: start: 20160813
  4. HUMULIN R U-500 [Suspect]
     Active Substance: INSULIN HUMAN
     Dosage: 175 U, TID
     Route: 065
     Dates: end: 20160814

REACTIONS (4)
  - Blood glucose increased [Recovered/Resolved]
  - Incorrect dose administered [Recovered/Resolved]
  - Pain [Unknown]
  - Joint swelling [Unknown]

NARRATIVE: CASE EVENT DATE: 20160701
